FAERS Safety Report 7301447-6 (Version None)
Quarter: 2011Q1

REPORT INFORMATION
  Report Type: 
  Country: None (occurrence: None)
  Receive Date: 20110218
  Receipt Date: 20110216
  Transmission Date: 20110831
  Serious: Yes (Other)
  Sender: FDA-Public Use
  Company Number: DE-PFIZER INC-2011034029

PATIENT
  Age: 35 Year
  Sex: Male

DRUGS (3)
  1. NORVASC [Suspect]
     Indication: HYPERTENSION
  2. HYDROCHLOROTHIAZIDE [Interacting]
     Indication: HYPERTENSION
  3. BLOPRESS [Interacting]
     Indication: HYPERTENSION

REACTIONS (3)
  - DRUG INTERACTION [None]
  - VERTIGO [None]
  - DIZZINESS [None]
